FAERS Safety Report 8571451-9 (Version None)
Quarter: 2012Q2

REPORT INFORMATION
  Report Type: 
  Country: None (occurrence: None)
  Receive Date: 20120418
  Receipt Date: 20090113
  Transmission Date: 20120825
  Serious: Yes (Other)
  Sender: FDA-Public Use
  Company Number: PHEH2009US00745

PATIENT
  Sex: Male

DRUGS (3)
  1. DIOVAN HCT [Suspect]
     Dosage: 80 MG
     Dates: start: 20081201
  2. DIOVAN HCT [Suspect]
     Dosage: 80/12.5 MG
     Dates: start: 20050101
  3. HYDROCHLOROTHIAZIDE [Suspect]
     Dosage: 2 MG

REACTIONS (2)
  - HYPOTENSION [None]
  - DIZZINESS [None]
